FAERS Safety Report 6745946-4 (Version None)
Quarter: 2010Q2

REPORT INFORMATION
  Report Type: 
  Country: None (occurrence: None)
  Receive Date: 20100528
  Receipt Date: 20100524
  Transmission Date: 20101027
  Serious: Yes (Death)
  Sender: FDA-Public Use
  Company Number: JP-JNJFOC-20100503929

PATIENT
  Sex: Female

DRUGS (8)
  1. RISPERDAL [Suspect]
     Indication: SOLILOQUY
     Route: 048
  2. RISPERDAL [Suspect]
     Indication: HALLUCINATION, VISUAL
     Route: 048
  3. ALPRAZOLAM [Suspect]
     Indication: HYPERTENSION
     Route: 048
  4. AKINETON [Concomitant]
     Route: 048
  5. ALMARL [Concomitant]
     Indication: HYPERTENSION
     Route: 048
  6. STAYBLA [Concomitant]
     Route: 048
  7. SYMMETREL [Concomitant]
     Indication: PARKINSONISM
     Route: 048
  8. CRAVIT [Concomitant]
     Indication: GENITAL DISCHARGE
     Route: 048

REACTIONS (3)
  - HALLUCINATION [None]
  - NEUROLEPTIC MALIGNANT SYNDROME [None]
  - SOLILOQUY [None]
